FAERS Safety Report 6537413-8 (Version None)
Quarter: 2009Q4

REPORT INFORMATION
  Report Type: 
  Country: None (occurrence: None)
  Receive Date: 20091229
  Receipt Date: 20091105
  Transmission Date: 20100525
  Serious: No
  Sender: FDA-Public Use
  Company Number: 1000009898

PATIENT
  Age: 91 Year
  Sex: Female

DRUGS (8)
  1. BYSTOLIC [Suspect]
     Indication: HYPERTENSION
     Dosage: 5 MG (5 MG, 1 IN 1 D), ORAL
     Route: 048
     Dates: start: 20090916
  2. HYZAAR [Concomitant]
  3. ALDACTONE [Concomitant]
  4. ASPIRIN [Concomitant]
  5. LEVOTHYROXINE [Concomitant]
  6. NORVASC [Concomitant]
  7. LOVAZA [Concomitant]
  8. OMEPRAZOLE [Concomitant]

REACTIONS (1)
  - BRADYCARDIA [None]
